FAERS Safety Report 6094173-5 (Version None)
Quarter: 2009Q1

REPORT INFORMATION
  Report Type: 
  Country: None (occurrence: None)
  Receive Date: 20090226
  Receipt Date: 20090205
  Transmission Date: 20090719
  Serious: Yes (Hospitalization)
  Sender: FDA-Public Use
  Company Number: DE-BRISTOL-MYERS SQUIBB COMPANY-14515662

PATIENT
  Age: 40 Year
  Sex: Female

DRUGS (7)
  1. LYSODREN [Suspect]
     Indication: ADRENOCORTICAL CARCINOMA
     Dosage: 3G/DAY: 09-JAN-2009 TO 26-JAN-2009: 17 DAYS: ORALLY.
     Route: 048
     Dates: start: 20090127, end: 20090203
  2. IDEOS [Concomitant]
     Indication: OSTEOPOROSIS PROPHYLAXIS
     Dates: start: 20090109
  3. PANTOZOL [Concomitant]
     Indication: GASTRITIS
     Dates: start: 20090109, end: 20090203
  4. DECORTIN [Concomitant]
     Indication: RASH
     Dates: start: 20090121, end: 20090130
  5. FENISTIL [Concomitant]
     Dates: start: 20090121, end: 20090130
  6. LEVOTHYROXINE SODIUM [Concomitant]
     Indication: HYPOTHYROIDISM
  7. CIPROFLOXACIN HCL [Concomitant]
     Indication: URINARY TRACT INFECTION
     Dates: start: 20090111, end: 20090120

REACTIONS (2)
  - NEUTROPENIA [None]
  - PYREXIA [None]
